FAERS Safety Report 12445914 (Version 2)
Quarter: 2016Q3

REPORT INFORMATION
  Report Type: Spontaneous
  Country: US (occurrence: US)
  Receive Date: 20160608
  Receipt Date: 20160725
  Transmission Date: 20161109
  Serious: No
  Sender: FDA-Public Use
  Company Number: US-JNJFOC-20160511096

PATIENT
  Age: 80 Year
  Sex: Female
  Weight: 47.63 kg

DRUGS (1)
  1. TYLENOL REGULAR STRENGTH [Suspect]
     Active Substance: ACETAMINOPHEN
     Indication: PAIN
     Dosage: AS NECESSARY
     Route: 048

REACTIONS (3)
  - Foreign body [Unknown]
  - Incorrect dose administered [Unknown]
  - Product difficult to swallow [Unknown]
